FAERS Safety Report 10042413 (Version 1)
Quarter: 2014Q1

REPORT INFORMATION
  Report Type: Report from Study
  Country: US (occurrence: US)
  Receive Date: 20140327
  Receipt Date: 20140327
  Transmission Date: 20141002
  Serious: Yes (Hospitalization)
  Sender: FDA-Public Use
  Company Number: US-ABBVIE-14P-163-1214250-00

PATIENT
  Sex: Male
  Weight: 55.84 kg

DRUGS (1)
  1. HUMIRA [Suspect]
     Indication: CROHN^S DISEASE
     Dates: start: 2008, end: 201309

REACTIONS (5)
  - Crohn^s disease [Recovering/Resolving]
  - Intestinal fistula [Recovered/Resolved]
  - Subcutaneous abscess [Not Recovered/Not Resolved]
  - Post procedural fistula [Not Recovered/Not Resolved]
  - Gastrointestinal disorder [Recovered/Resolved]
